FAERS Safety Report 21892208 (Version 1)
Quarter: 2023Q1

REPORT INFORMATION
  Report Type: Spontaneous
  Country: US (occurrence: US)
  Receive Date: 20230120
  Receipt Date: 20230120
  Transmission Date: 20230417
  Serious: No
  Sender: FDA-Public Use
  Company Number: US-JAZZ-2022-US-034149

PATIENT
  Age: 23 Year
  Sex: Male
  Weight: 81.8 kg

DRUGS (1)
  1. XYREM [Suspect]
     Active Substance: SODIUM OXYBATE
     Indication: Product used for unknown indication
     Dosage: INGESTION

REACTIONS (1)
  - Extra dose administered [Unknown]
